FAERS Safety Report 23502587 (Version 1)
Quarter: 2024Q1

REPORT INFORMATION
  Report Type: Spontaneous
  Country: US (occurrence: US)
  Receive Date: 20240208
  Receipt Date: 20240208
  Transmission Date: 20240409
  Serious: No
  Sender: FDA-Public Use
  Company Number: US-INTRA-CELLULAR THERAPIES, INC.-2023ICT00685

PATIENT
  Sex: Male

DRUGS (7)
  1. CAPLYTA [Suspect]
     Active Substance: LUMATEPERONE
     Indication: Bipolar I disorder
     Dosage: UNK
  2. ZYPREXA [Suspect]
     Active Substance: OLANZAPINE
     Dosage: UNK
  3. ZYPREXA [Suspect]
     Active Substance: OLANZAPINE
     Dosage: DECREASED DOSE
  4. LITHIUM [Suspect]
     Active Substance: LITHIUM
     Dosage: UNK
  5. LITHIUM [Suspect]
     Active Substance: LITHIUM
     Dosage: DECREASED DOSE
  6. UNSPECIFIED INGREDIENT [Suspect]
     Active Substance: UNSPECIFIED INGREDIENT
     Dosage: UNK
  7. UNSPECIFIED INGREDIENT [Suspect]
     Active Substance: UNSPECIFIED INGREDIENT
     Dosage: DECREASED DOSE

REACTIONS (1)
  - Akathisia [Recovered/Resolved]
